FAERS Safety Report 8505004-5 (Version None)
Quarter: 2012Q3

REPORT INFORMATION
  Report Type: 
  Country: None (occurrence: None)
  Receive Date: 20120712
  Receipt Date: 20120705
  Transmission Date: 20120928
  Serious: Yes (Hospitalization)
  Sender: FDA-Public Use
  Company Number: KR-US-EMD SERONO, INC.-7145953

PATIENT
  Sex: Female
  Weight: 31 kg

DRUGS (2)
  1. SAIZEN [Suspect]
     Indication: GROWTH HORMONE DEFICIENCY
     Route: 058
     Dates: start: 20110824
  2. ANTICANCER THERAPY [Concomitant]
     Indication: BONE SARCOMA

REACTIONS (1)
  - CARDIAC DISORDER [None]
